FAERS Safety Report 14438741 (Version 1)
Quarter: 2018Q1

REPORT INFORMATION
  Report Type: Spontaneous
  Country: US (occurrence: US)
  Receive Date: 20180125
  Receipt Date: 20180125
  Transmission Date: 20180509
  Serious: No
  Sender: FDA-Public Use
  Company Number: US-UNITED THERAPEUTICS-UNT-2017-013106

PATIENT
  Sex: Female
  Weight: 111.11 kg

DRUGS (1)
  1. REMODULIN [Suspect]
     Active Substance: TREPROSTINIL
     Indication: PULMONARY ARTERIAL HYPERTENSION
     Dosage: 0.0815 ?G/KG, CONTINUING
     Route: 058
     Dates: start: 20090112

REACTIONS (2)
  - Abdominal hernia [Unknown]
  - Infusion site pain [Unknown]

NARRATIVE: CASE EVENT DATE: 2017
